FAERS Safety Report 11362045 (Version 1)
Quarter: 2015Q3

REPORT INFORMATION
  Report Type: Spontaneous
  Country: US (occurrence: US)
  Receive Date: 20150810
  Receipt Date: 20150810
  Transmission Date: 20151125
  Serious: No
  Sender: FDA-Public Use
  Company Number: US-GLAXOSMITHKLINE-US2015114159

PATIENT
  Age: 7 Year
  Sex: Male

DRUGS (1)
  1. FLONASE [Suspect]
     Active Substance: FLUTICASONE PROPIONATE
     Indication: PRODUCT USED FOR UNKNOWN INDICATION
     Dosage: UNK

REACTIONS (5)
  - Anxiety [Recovered/Resolved]
  - Tonsillar inflammation [Recovered/Resolved]
  - Throat irritation [Recovered/Resolved]
  - Abnormal behaviour [Recovered/Resolved]
  - Tonsillar disorder [Recovered/Resolved]
